FAERS Safety Report 15628792 (Version 6)
Quarter: 2020Q1

REPORT INFORMATION
  Report Type: Report from Study
  Country: US (occurrence: US)
  Receive Date: 20181116
  Receipt Date: 20200314
  Transmission Date: 20200409
  Serious: No
  Sender: FDA-Public Use
  Company Number: US-ACTELION-A-US2018-181476

PATIENT
  Age: 22 Year
  Sex: Male

DRUGS (1)
  1. OPSUMIT [Suspect]
     Active Substance: MACITENTAN
     Indication: PULMONARY ARTERIAL HYPERTENSION
     Dosage: UNK
     Route: 048
     Dates: start: 20171108

REACTIONS (1)
  - Blood bilirubin increased [Unknown]

NARRATIVE: CASE EVENT DATE: 20171108
